FAERS Safety Report 9196521 (Version 1)
Quarter: 2013Q1

REPORT INFORMATION
  Report Type: Spontaneous
  Country: US (occurrence: US)
  Receive Date: 20130328
  Receipt Date: 20130328
  Transmission Date: 20140127
  Serious: No
  Sender: FDA-Public Use
  Company Number: US-PFIZER INC-2013094814

PATIENT
  Age: 61 Year
  Sex: Female
  Weight: 63.49 kg

DRUGS (4)
  1. TOVIAZ [Suspect]
     Indication: URINARY INCONTINENCE
     Dosage: 4 MG, UNK
     Dates: start: 2012
  2. TOVIAZ [Suspect]
     Dosage: 8 MG, UNK
     Dates: start: 2013
  3. JANUVIA [Concomitant]
     Indication: DIABETES MELLITUS
     Dosage: UNK
  4. METFORMIN [Concomitant]
     Indication: DIABETES MELLITUS
     Dosage: UNK

REACTIONS (1)
  - Dry mouth [Unknown]
